FAERS Safety Report 7412626-1 (Version None)
Quarter: 2011Q2

REPORT INFORMATION
  Report Type: 
  Country: None (occurrence: None)
  Receive Date: 20110413
  Receipt Date: 20110412
  Transmission Date: 20111010
  Serious: Yes (Other)
  Sender: FDA-Public Use
  Company Number: US-JNJFOC-20110403118

PATIENT
  Sex: Female
  Weight: 61.24 kg

DRUGS (3)
  1. CONCERTA [Suspect]
     Dosage: IN THE MORNING
     Route: 048
  2. BIRTH CONTROL PILL [Suspect]
     Indication: CONTRACEPTION
     Dosage: ONCE DAILY
     Route: 048
  3. CONCERTA [Suspect]
     Indication: ATTENTION DEFICIT/HYPERACTIVITY DISORDER
     Dosage: AS NEEDED IN THE EVENING
     Route: 048

REACTIONS (5)
  - BREAST TENDERNESS [None]
  - DRUG PRESCRIBING ERROR [None]
  - PREGNANCY [None]
  - MOOD SWINGS [None]
  - WEIGHT INCREASED [None]
